FAERS Safety Report 6088004-7 (Version None)
Quarter: 2009Q1

REPORT INFORMATION
  Report Type: 
  Country: None (occurrence: None)
  Receive Date: 20090219
  Receipt Date: 20090205
  Transmission Date: 20090719
  Serious: Yes (Other)
  Sender: FDA-Public Use
  Company Number: 2009S1001375

PATIENT
  Age: 2 Day
  Sex: Male
  Weight: 2.268 kg

DRUGS (3)
  1. CUROSURF [Suspect]
     Indication: RESPIRATORY DISTRESS
     Dosage: X1, INTRATRACHEAL
     Route: 039
     Dates: start: 20081126, end: 20081126
  2. AMPICILLIN [Concomitant]
  3. CEFOTAXIME [Concomitant]

REACTIONS (2)
  - PNEUMOTHORAX [None]
  - RESPIRATORY DISORDER NEONATAL [None]
